FAERS Safety Report 8625580-1 (Version None)
Quarter: 2012Q3

REPORT INFORMATION
  Report Type: 
  Country: None (occurrence: None)
  Receive Date: 20120827
  Receipt Date: 20120815
  Transmission Date: 20120928
  Serious: Yes (Other)
  Sender: FDA-Public Use
  Company Number: CA-ROCHE-1103814

PATIENT
  Sex: Female

DRUGS (3)
  1. XOLAIR [Suspect]
     Dates: start: 20110427
  2. XOLAIR [Suspect]
     Indication: ASTHMA
     Route: 058
     Dates: start: 20080610
  3. XOLAIR [Suspect]
     Dates: start: 20110413

REACTIONS (5)
  - THROAT IRRITATION [None]
  - RHEUMATOID ARTHRITIS [None]
  - BLOOD PRESSURE ABNORMAL [None]
  - MALAISE [None]
  - MIDDLE INSOMNIA [None]
